FAERS Safety Report 9284960 (Version 1)
Quarter: 2013Q2

REPORT INFORMATION
  Report Type: Report from Study
  Country: AU (occurrence: AU)
  Receive Date: 20130513
  Receipt Date: 20130513
  Transmission Date: 20140414
  Serious: Yes (Hospitalization, Other)
  Sender: FDA-Public Use
  Company Number: PHHY2011AU117906

PATIENT
  Sex: Male

DRUGS (2)
  1. EXJADE [Suspect]
     Indication: HAEMOCHROMATOSIS
     Dosage: 1000 MG, UNK
     Dates: start: 20020101
  2. EXJADE [Suspect]
     Indication: MYELODYSPLASTIC SYNDROME
     Dosage: 2 DF, DAILY

REACTIONS (7)
  - Full blood count decreased [Recovering/Resolving]
  - Cerebrovascular accident [Unknown]
  - Cellulitis [Unknown]
  - Anaemia [Unknown]
  - Dysgeusia [Unknown]
  - Fatigue [Recovering/Resolving]
  - Hearing impaired [Unknown]
